FAERS Safety Report 8202507-8 (Version None)
Quarter: 2012Q1

REPORT INFORMATION
  Report Type: 
  Country: None (occurrence: None)
  Receive Date: 20120312
  Receipt Date: 20120306
  Transmission Date: 20120608
  Serious: Yes (Other)
  Sender: FDA-Public Use
  Company Number: US-BAYER-2012-013558

PATIENT
  Age: 66 Year
  Sex: Male

DRUGS (5)
  1. SYNTHROID [Concomitant]
  2. IBUPROFEN (ADVIL) [Concomitant]
  3. FINASTERIDE [Concomitant]
  4. BETASERON [Suspect]
     Indication: MULTIPLE SCLEROSIS
     Dosage: 8 MIU, QOD
     Route: 058
     Dates: start: 20111005
  5. TAMSULOSIN HCL [Concomitant]

REACTIONS (2)
  - INGUINAL HERNIA [None]
  - DIZZINESS [None]
